FAERS Safety Report 18631610 (Version 1)
Quarter: 2020Q4

REPORT INFORMATION
  Report Type: Spontaneous
  Country: US (occurrence: US)
  Receive Date: 20201218
  Receipt Date: 20201218
  Transmission Date: 20210114
  Serious: No
  Sender: FDA-Public Use
  Company Number: US-AMGEN-USASP2020203968

PATIENT
  Age: 73 Year
  Sex: Female

DRUGS (7)
  1. SYNTHROID [Concomitant]
     Active Substance: LEVOTHYROXINE SODIUM
     Dosage: 88 MICROGRAM
  2. INDAPAMIDE. [Concomitant]
     Active Substance: INDAPAMIDE
     Dosage: 1.25 MILLIGRAM
  3. TYLENOL [Concomitant]
     Active Substance: ACETAMINOPHEN
  4. CARVEDILOL. [Concomitant]
     Active Substance: CARVEDILOL
     Dosage: 6.25 MILLIGRAM
  5. VERAPAMIL [Concomitant]
     Active Substance: VERAPAMIL HYDROCHLORIDE
     Dosage: 180 MILLIGRAM
  6. REPATHA [Suspect]
     Active Substance: EVOLOCUMAB
     Indication: HYPERCHOLESTEROLAEMIA
     Dosage: 140 MILLIGRAM PER MILLILITRE, Q2WK
     Route: 058
     Dates: start: 20160304
  7. AMOXICILLIN. [Concomitant]
     Active Substance: AMOXICILLIN

REACTIONS (2)
  - Adverse drug reaction [Not Recovered/Not Resolved]
  - Inappropriate schedule of product administration [Unknown]

NARRATIVE: CASE EVENT DATE: 2020
